FAERS Safety Report 15679063 (Version 1)
Quarter: 2018Q4

REPORT INFORMATION
  Report Type: Spontaneous
  Country: GB (occurrence: GB)
  Receive Date: 20181203
  Receipt Date: 20181203
  Transmission Date: 20190205
  Serious: Yes (Other)
  Sender: FDA-Public Use
  Company Number: GB-JNJFOC-20181137379

PATIENT
  Age: 49 Year
  Sex: Male

DRUGS (6)
  1. DIAZEPAM. [Concomitant]
     Active Substance: DIAZEPAM
     Indication: PRODUCT USED FOR UNKNOWN INDICATION
     Route: 065
     Dates: start: 20180919
  2. NAPROXEN. [Concomitant]
     Active Substance: NAPROXEN
     Indication: PRODUCT USED FOR UNKNOWN INDICATION
     Route: 065
     Dates: start: 20180919
  3. PARACETAMOL [Suspect]
     Active Substance: ACETAMINOPHEN
     Indication: ANALGESIC THERAPY
     Dosage: 8 X 500 MG
     Route: 065
     Dates: start: 20180919, end: 20180923
  4. PARACETAMOL [Suspect]
     Active Substance: ACETAMINOPHEN
     Route: 065
  5. CODEINE [Suspect]
     Active Substance: CODEINE
     Indication: ANALGESIC THERAPY
     Dosage: 11X30MG
     Route: 065
     Dates: start: 20180919, end: 20180923
  6. COCODAMOL [Suspect]
     Active Substance: ACETAMINOPHEN\CODEINE PHOSPHATE
     Indication: ANALGESIC THERAPY
     Dosage: 16X30/500
     Route: 065
     Dates: start: 20180918, end: 20180923

REACTIONS (5)
  - Toxicity to various agents [Unknown]
  - Feeling abnormal [Unknown]
  - Accidental overdose [Unknown]
  - Liver function test abnormal [Unknown]
  - Constipation [Unknown]
